FAERS Safety Report 4606613-6 (Version None)
Quarter: 2005Q2

REPORT INFORMATION
  Report Type: 
  Country: None (occurrence: None)
  Receive Date: 20050223
  Receipt Date: 20040603
  Transmission Date: 20051028
  Serious: Yes (Disabling)
  Sender: FDA-Public Use
  Company Number: WAES 0406USA00324

PATIENT
  Sex: Female

DRUGS (5)
  1. ZOCOR [Suspect]
     Indication: BLOOD CHOLESTEROL INCREASED
     Dosage: 40 MG/PM/PO
     Route: 048
     Dates: start: 20030801
  2. AVANDAMET [Concomitant]
  3. CORGARD [Concomitant]
  4. COZAAR [Concomitant]
  5. LANOXIN [Concomitant]

REACTIONS (1)
  - MYALGIA [None]
